FAERS Safety Report 4514827-9 (Version None)
Quarter: 2004Q4

REPORT INFORMATION
  Report Type: 
  Country: None (occurrence: None)
  Receive Date: 20041126
  Receipt Date: 20041116
  Transmission Date: 20050328
  Serious: Yes (Death)
  Sender: FDA-Public Use
  Company Number: 2004AP05353

PATIENT
  Age: 80 Year
  Sex: Male

DRUGS (6)
  1. CASODEX [Suspect]
     Indication: PROSTATE CANCER
     Dosage: 80 MG DAILY PO
     Route: 048
     Dates: start: 20040421
  2. ZOLADEX [Suspect]
     Indication: PROSTATE CANCER
     Dosage: 3.6 MG Q4WK SQ
     Route: 058
     Dates: start: 20040507
  3. WARFARIN SODIUM [Suspect]
     Indication: INTRACARDIAC THROMBUS
     Dosage: 1 MG DAILY PO
     Route: 048
     Dates: start: 20040430
  4. DIGOXIN [Concomitant]
  5. KETAS [Concomitant]
  6. DEPAKENE [Concomitant]

REACTIONS (6)
  - CARDIAC FAILURE [None]
  - DRUG INEFFECTIVE [None]
  - EMBOLISM [None]
  - INTERSTITIAL LUNG DISEASE [None]
  - RESPIRATORY FAILURE [None]
  - STRIDOR [None]
